FAERS Safety Report 13085353 (Version 1)
Quarter: 2017Q1

REPORT INFORMATION
  Report Type: Spontaneous
  Country: US (occurrence: US)
  Receive Date: 20170104
  Receipt Date: 20170104
  Transmission Date: 20170428
  Serious: Yes (Death)
  Sender: FDA-Public Use
  Company Number: US-JNJFOC-20170100940

PATIENT
  Age: 32 Year
  Sex: Female

DRUGS (6)
  1. LISDEXAMFETAMINE [Suspect]
     Active Substance: LISDEXAMFETAMINE
     Indication: SUICIDE ATTEMPT
     Route: 065
  2. TADALAFIL [Suspect]
     Active Substance: TADALAFIL
     Indication: SUICIDE ATTEMPT
     Route: 065
  3. CITALOPRAM [Suspect]
     Active Substance: CITALOPRAM HYDROBROMIDE
     Indication: SUICIDE ATTEMPT
     Route: 065
  4. INSULIN [Suspect]
     Active Substance: INSULIN NOS
     Indication: SUICIDE ATTEMPT
     Route: 065
  5. CAFFEINE. [Suspect]
     Active Substance: CAFFEINE
     Indication: SUICIDE ATTEMPT
     Route: 065
  6. RISPERIDONE. [Suspect]
     Active Substance: RISPERIDONE
     Indication: SUICIDE ATTEMPT
     Route: 065

REACTIONS (2)
  - Toxicity to various agents [Fatal]
  - Completed suicide [Fatal]
